FAERS Safety Report 19291389 (Version 2)
Quarter: 2021Q2

REPORT INFORMATION
  Report Type: Spontaneous
  Country: DE (occurrence: DE)
  Receive Date: 20210523
  Receipt Date: 20210527
  Transmission Date: 20210717
  Serious: No
  Sender: FDA-Public Use
  Company Number: DE-UCBSA-2021022555

PATIENT

DRUGS (1)
  1. LEGANTO [Suspect]
     Active Substance: ROTIGOTINE
     Indication: RESTLESS LEGS SYNDROME
     Dosage: 3 MILLIGRAM, UNK

REACTIONS (5)
  - Drug ineffective [Unknown]
  - Skin reaction [Unknown]
  - Burning sensation [Unknown]
  - Restless legs syndrome [Unknown]
  - Device adhesion issue [Unknown]
